FAERS Safety Report 12318270 (Version 3)
Quarter: 2016Q2

REPORT INFORMATION
  Report Type: Spontaneous
  Country: IT (occurrence: IT)
  Receive Date: 20160429
  Receipt Date: 20160516
  Transmission Date: 20160815
  Serious: Yes (Life-Threatening)
  Sender: FDA-Public Use
  Company Number: IT-SA-2016SA083987

PATIENT
  Age: 2 Year
  Sex: Male
  Weight: 10 kg

DRUGS (14)
  1. THYMOGLOBULINE [Suspect]
     Active Substance: LAPINE T-LYMPHOCYTE IMMUNE GLOBULIN
     Indication: ALLOGENIC BONE MARROW TRANSPLANTATION THERAPY
     Route: 042
     Dates: start: 20151219, end: 20151222
  2. EMEND [Concomitant]
     Active Substance: APREPITANT
     Dates: start: 20151222, end: 20151224
  3. TREOSULFAN [Concomitant]
     Active Substance: TREOSULFAN
     Indication: HYPER IGM SYNDROME
     Dosage: 7GR/DAY
     Route: 042
     Dates: start: 20151223, end: 20151225
  4. ACICLOVIR [Concomitant]
     Active Substance: ACYCLOVIR
  5. AMIKACIN [Concomitant]
     Active Substance: AMIKACIN
  6. MYCOSTATIN [Concomitant]
     Active Substance: NYSTATIN
     Dosage: 100000 IU/ML ORAL SUSPENSION VIAL 100 ML
     Route: 048
  7. THIOTEPA. [Suspect]
     Active Substance: THIOTEPA
     Indication: ALLOGENIC BONE MARROW TRANSPLANTATION THERAPY
     Route: 042
     Dates: start: 20151222, end: 20151222
  8. RANITIDINE. [Concomitant]
     Active Substance: RANITIDINE
  9. FLUDARABINE PHOSPHATE. [Suspect]
     Active Substance: FLUDARABINE PHOSPHATE
     Indication: ALLOGENIC BONE MARROW TRANSPLANTATION THERAPY
     Route: 065
  10. ITRACONAZOLE. [Concomitant]
     Active Substance: ITRACONAZOLE
  11. LASIX [Concomitant]
     Active Substance: FUROSEMIDE
  12. DEURSIL [Concomitant]
     Active Substance: URSODIOL
  13. FLUDARABINE PHOSPHATE. [Suspect]
     Active Substance: FLUDARABINE PHOSPHATE
     Indication: ALLOGENIC BONE MARROW TRANSPLANTATION THERAPY
     Route: 042
     Dates: start: 20151223, end: 20151226
  14. GLAZIDIM [Concomitant]
     Active Substance: CEFTAZIDIME

REACTIONS (1)
  - Dermatitis exfoliative generalised [Not Recovered/Not Resolved]

NARRATIVE: CASE EVENT DATE: 20160101
